FAERS Safety Report 8365616-9 (Version None)
Quarter: 2012Q2

REPORT INFORMATION
  Report Type: 
  Country: None (occurrence: None)
  Receive Date: 20120516
  Receipt Date: 20120510
  Transmission Date: 20120825
  Serious: Yes (Hospitalization, Disabling)
  Sender: FDA-Public Use
  Company Number: US-MERCK-1201USA00780

PATIENT
  Age: 74 Year
  Sex: Female

DRUGS (7)
  1. FOSAMAX [Suspect]
     Route: 048
     Dates: start: 19980801, end: 20100101
  2. VITAMIN D (UNSPECIFIED) [Concomitant]
     Route: 065
  3. ARTHROTEC [Concomitant]
     Indication: OSTEOARTHRITIS
     Route: 065
  4. SYNTHROID [Concomitant]
     Route: 048
  5. VITAMINS (UNSPECIFIED) [Concomitant]
     Route: 065
  6. FOSAMAX [Suspect]
     Route: 048
     Dates: start: 19980801, end: 20100101
  7. CALCIUM (UNSPECIFIED) [Concomitant]
     Route: 065

REACTIONS (1)
  - ATYPICAL FEMUR FRACTURE [None]
